FAERS Safety Report 21375893 (Version 1)
Quarter: 2022Q3

REPORT INFORMATION
  Report Type: Spontaneous
  Country: NO (occurrence: NO)
  Receive Date: 20220926
  Receipt Date: 20220926
  Transmission Date: 20221026
  Serious: Yes (Life-Threatening, Other)
  Sender: FDA-Public Use
  Company Number: None

PATIENT
  Age: 56 Year
  Sex: Male
  Weight: 104 kg

DRUGS (5)
  1. AMARYL [Suspect]
     Active Substance: GLIMEPIRIDE
     Indication: Hyperglycaemia
     Dosage: 1 MG, QD
     Dates: start: 20201207, end: 20220603
  2. CANDESARTAN [Concomitant]
     Active Substance: CANDESARTAN
     Indication: Hypertension
     Dosage: 32 MG, QD
     Dates: start: 2010
  3. CANDESARTAN [Concomitant]
     Active Substance: CANDESARTAN
     Indication: Migraine
  4. COD LIVER OIL [Concomitant]
     Active Substance: COD LIVER OIL
  5. SIMVASTATIN [Concomitant]
     Active Substance: SIMVASTATIN
     Indication: Hypercholesterolaemia
     Dosage: 10 MG, QD
     Dates: start: 2010

REACTIONS (10)
  - Muscle spasms [Not Recovered/Not Resolved]
  - Arrhythmia [Unknown]
  - Pruritus [Unknown]
  - Hypoaesthesia [Unknown]
  - Erythema [Unknown]
  - Feeling hot [Unknown]
  - Peripheral swelling [Unknown]
  - Dyspnoea [Unknown]
  - Visual impairment [Unknown]
  - Headache [Unknown]

NARRATIVE: CASE EVENT DATE: 20201211
